FAERS Safety Report 6740505-1 (Version None)
Quarter: 2010Q2

REPORT INFORMATION
  Report Type: 
  Country: None (occurrence: None)
  Receive Date: 20100525
  Receipt Date: 20100514
  Transmission Date: 20101027
  Serious: Yes (Life-Threatening, Other)
  Sender: FDA-Public Use
  Company Number: HQWYE050512AUG03

PATIENT
  Sex: Female

DRUGS (1)
  1. PREMARIN [Suspect]
     Indication: OESTROGEN REPLACEMENT THERAPY
     Dosage: DAILY
     Route: 048

REACTIONS (4)
  - BREAST CYST [None]
  - CARDIAC DISORDER [None]
  - THROMBOSIS [None]
  - VARICOSE VEIN [None]
